FAERS Safety Report 20298630 (Version 1)
Quarter: 2022Q1

REPORT INFORMATION
  Report Type: Spontaneous
  Country: US (occurrence: None)
  Receive Date: 20220104
  Receipt Date: 20220104
  Transmission Date: 20220423
  Serious: Yes (Death)
  Sender: FDA-Public Use
  Company Number: None

PATIENT
  Age: 64 Year
  Sex: Male

DRUGS (4)
  1. TACROLIMUS [Suspect]
     Active Substance: TACROLIMUS
     Indication: Organ transplant
     Dosage: OTHER FREQUENCY : QAM; 1.5 MG QAM,1 MG QPM?
     Route: 004
     Dates: start: 20191023
  2. TACROLIMUS [Suspect]
     Active Substance: TACROLIMUS
     Dosage: OTHER FREQUENCY : Q PM;?
     Route: 048
     Dates: start: 20191023
  3. MYCOPHENOLIC ACID [Concomitant]
     Active Substance: MYCOPHENOLIC ACID
  4. CLONIDINE [Concomitant]
     Active Substance: CLONIDINE

REACTIONS (1)
  - Death [None]
